FAERS Safety Report 6182781-2 (Version None)
Quarter: 2009Q2

REPORT INFORMATION
  Report Type: 
  Country: None (occurrence: None)
  Receive Date: 20090505
  Receipt Date: 20090424
  Transmission Date: 20091009
  Serious: Yes (Life-Threatening, Hospitalization)
  Sender: FDA-Public Use
  Company Number: TCI2009A00794

PATIENT
  Age: 78 Year
  Sex: Male

DRUGS (11)
  1. LANSOPRAZOLE [Suspect]
     Indication: GASTRIC ULCER
     Dosage: 15 MG (15 MG, 1 IN 1 D)  PER ORAL
     Route: 048
     Dates: start: 20080723, end: 20081224
  2. PLAVIX [Suspect]
     Indication: CEREBRAL INFARCTION
     Dosage: 50 MG (50 MG, 1 IN 1 D) 1) PER ORAL
     Route: 048
     Dates: start: 20080813, end: 20081224
  3. PURSENNID (SENNA ALEXANDRINA LEAF) [Concomitant]
  4. MAGMITT (MAGNESIUM OXIDE) [Concomitant]
  5. LENDORM [Concomitant]
  6. DORAL [Concomitant]
  7. TIZANIDINE HCL [Concomitant]
  8. COUGHNOL (AMBROXOL HYDROCHLORIDE) [Concomitant]
  9. HUSCODE (CHLORPHENAMINE MALEATE, METHYLEPHEDRINE HYDROCHLORIDE-DL, DIH [Concomitant]
  10. FLOMOX (CEFCAPENE PIVOXIL HYDROCHLORIDE) [Concomitant]
  11. DIART (AZOSEMIDE) [Concomitant]

REACTIONS (11)
  - CEREBRAL INFARCTION [None]
  - DEHYDRATION [None]
  - DERMATITIS EXFOLIATIVE [None]
  - ECZEMA [None]
  - FALL [None]
  - HAEMORRHAGE [None]
  - HYPEREOSINOPHILIC SYNDROME [None]
  - HYPERKALAEMIA [None]
  - OEDEMA PERIPHERAL [None]
  - RENAL FAILURE [None]
  - WEIGHT INCREASED [None]
